FAERS Safety Report 4944892-6 (Version None)
Quarter: 2006Q1

REPORT INFORMATION
  Report Type: 
  Country: None (occurrence: None)
  Receive Date: 20060315
  Receipt Date: 20060307
  Transmission Date: 20060701
  Serious: Yes (Hospitalization)
  Sender: FDA-Public Use
  Company Number: GB-MERCK-0603GBR00031

PATIENT
  Sex: Female

DRUGS (4)
  1. FOSAMAX [Suspect]
     Indication: OSTEOPOROSIS
     Route: 048
     Dates: start: 20020101
  2. BISOPROLOL [Concomitant]
     Route: 048
  3. ACETAMINOPHEN [Concomitant]
     Route: 065
  4. CODEINE [Concomitant]
     Route: 065

REACTIONS (1)
  - DUODENAL ULCER HAEMORRHAGE [None]
